FAERS Safety Report 14944378 (Version 1)
Quarter: 2018Q2

REPORT INFORMATION
  Report Type: Spontaneous
  Country: IT (occurrence: IT)
  Receive Date: 20180528
  Receipt Date: 20180528
  Transmission Date: 20180711
  Serious: Yes (Other)
  Sender: FDA-Public Use
  Company Number: IT-BAXTER-2018BAX015153

PATIENT
  Age: 78 Year
  Sex: Male
  Weight: 69 kg

DRUGS (2)
  1. CIPROSOL 2MG/ML, SOLUZIONE PER INFUSIONE [Suspect]
     Active Substance: CIPROFLOXACIN LACTATE
     Indication: DIARRHOEA
     Route: 042
     Dates: start: 20180506, end: 20180508
  2. METRONIDAZOLO BAXTER S.P.A. [Suspect]
     Active Substance: METRONIDAZOLE
     Indication: DIARRHOEA
     Dosage: 500 MG X 3
     Route: 042
     Dates: start: 20180506, end: 20180507

REACTIONS (1)
  - Eczema [Recovered/Resolved]

NARRATIVE: CASE EVENT DATE: 20180507
